FAERS Safety Report 8300436 (Version 4)
Quarter: 2014Q1

REPORT INFORMATION
  Report Type: Report from Study
  Country: JP (occurrence: JP)
  Receive Date: 20111219
  Receipt Date: 20140106
  Transmission Date: 20141002
  Serious: Yes (Death, Other)
  Sender: FDA-Public Use
  Company Number: PHHY2011JP109964

PATIENT
  Age: 49 Year
  Sex: Male

DRUGS (25)
  1. CERTICAN [Suspect]
     Indication: PROPHYLAXIS AGAINST TRANSPLANT REJECTION
     Dosage: 1.5 MG
     Route: 048
     Dates: start: 20110325, end: 20110530
  2. CERTICAN [Suspect]
     Dosage: 3 MG, UNK
     Route: 048
     Dates: start: 20110531, end: 20110817
  3. CERTICAN [Suspect]
     Dosage: 3.5 MG, UNK
     Route: 048
     Dates: start: 20110921
  4. PREDNISOLONE [Suspect]
     Indication: PROPHYLAXIS AGAINST TRANSPLANT REJECTION
     Dosage: 10 MG, QD
     Route: 048
     Dates: start: 201103
  5. TS 1 [Suspect]
     Indication: PANCREATIC CARCINOMA
     Dosage: 60 MG, QD
     Route: 048
     Dates: start: 20110328
  6. TS 1 [Suspect]
     Dosage: 40 MG, UNK
     Route: 048
     Dates: start: 20110415
  7. TS 1 [Suspect]
     Dosage: 40 MG, UNK
     Route: 048
     Dates: start: 20110624
  8. TS 1 [Suspect]
     Dosage: 40 MG, UNK
     Route: 048
     Dates: start: 20110710
  9. PROGRAF [Suspect]
     Indication: PROPHYLAXIS AGAINST TRANSPLANT REJECTION
     Dosage: 6.5 MG, UNK
     Route: 048
     Dates: start: 201103, end: 20110327
  10. PROGRAF [Suspect]
     Dosage: 3 MG, QD
     Route: 048
     Dates: start: 20110328
  11. CELLCEPT [Concomitant]
     Indication: PROPHYLAXIS AGAINST TRANSPLANT REJECTION
     Dosage: 1750 MG, UNK
     Route: 048
     Dates: start: 201103
  12. RENIVACE [Concomitant]
     Indication: PROPHYLAXIS
     Dosage: 2.5 MG, UNK
     Route: 048
     Dates: start: 201103
  13. RENIVACE [Concomitant]
     Dosage: 2.5 MG, UNK
     Route: 048
  14. BLOPRESS [Concomitant]
     Indication: PROPHYLAXIS
     Dosage: 4 MG, UNK
     Route: 048
     Dates: start: 201103
  15. TENORMIN [Concomitant]
     Indication: HYPERTENSION
     Dosage: 25 MG, UNK
     Route: 048
     Dates: start: 201103
  16. TENORMIN [Concomitant]
     Dosage: 25 MG, UNK
     Route: 048
     Dates: start: 20111005
  17. INSULIN [Concomitant]
     Indication: PROPHYLAXIS
     Dosage: 20 IU, UNK
     Route: 042
     Dates: start: 201103, end: 20110930
  18. LIPITOR [Concomitant]
     Dosage: 5 MG, UNK
     Route: 048
     Dates: start: 201103
  19. TAKEPRON [Concomitant]
     Indication: PROPHYLAXIS
     Dosage: 15 MG, UNK
     Route: 048
     Dates: start: 201103
  20. TAKEPRON [Concomitant]
     Dosage: UNK
     Dates: start: 20110328
  21. TAKEPRON [Concomitant]
     Dosage: UNK
     Dates: start: 201109
  22. CRAVIT [Concomitant]
     Indication: PROPHYLAXIS
     Dosage: 250 MG, UNK
     Route: 048
     Dates: start: 20111003
  23. OXYCONTIN [Concomitant]
     Indication: PROPHYLAXIS
     Dosage: 20 MG, UNK
     Route: 048
     Dates: start: 201110
  24. CIPROXAN [Concomitant]
     Dosage: UNK
     Dates: start: 20111003
  25. NOVORAPID [Concomitant]
     Dosage: 13 IU, UNK
     Route: 058
     Dates: start: 20110921, end: 20110930

REACTIONS (10)
  - Neoplasm progression [Fatal]
  - Multi-organ failure [Fatal]
  - C-reactive protein increased [Fatal]
  - Lymphocyte count decreased [Fatal]
  - Gamma-glutamyltransferase increased [Fatal]
  - Blood lactate dehydrogenase increased [Fatal]
  - Blood urea increased [Fatal]
  - Hepatic function abnormal [Fatal]
  - Blood glucose increased [Fatal]
  - Haemoglobin decreased [Fatal]
